FAERS Safety Report 8155721-4 (Version None)
Quarter: 2012Q1

REPORT INFORMATION
  Report Type: 
  Country: None (occurrence: None)
  Receive Date: 20120222
  Receipt Date: 20120210
  Transmission Date: 20120608
  Serious: No
  Sender: FDA-Public Use
  Company Number: CA-JNJFOC-20120207554

PATIENT
  Sex: Female
  Weight: 68 kg

DRUGS (3)
  1. FLURAZEPAM [Concomitant]
     Route: 065
  2. AVAPRO [Concomitant]
     Route: 065
  3. REMICADE [Suspect]
     Indication: COLITIS ULCERATIVE
     Route: 042
     Dates: start: 20100725

REACTIONS (1)
  - FUNGAL INFECTION [None]
